FAERS Safety Report 15347968 (Version 1)
Quarter: 2018Q3

REPORT INFORMATION
  Report Type: Spontaneous
  Country: US (occurrence: US)
  Receive Date: 20180829
  Receipt Date: 20180829
  Transmission Date: 20181010
  Serious: Yes (Death)
  Sender: FDA-Public Use
  Company Number: None

PATIENT
  Sex: Male

DRUGS (3)
  1. ZYTIGA [Suspect]
     Active Substance: ABIRATERONE ACETATE
     Indication: PROSTATE CANCER
     Route: 048
     Dates: start: 20180627
  2. FINASTERIDE 5MG [Concomitant]
     Active Substance: FINASTERIDE
  3. TAMSULOSIN 0.4MG [Concomitant]
     Active Substance: TAMSULOSIN

REACTIONS (1)
  - Death [None]
